FAERS Safety Report 4401586-3 (Version None)
Quarter: 2004Q3

REPORT INFORMATION
  Report Type: 
  Country: None (occurrence: None)
  Receive Date: 20040719
  Receipt Date: 20040709
  Transmission Date: 20050211
  Serious: Yes (Hospitalization)
  Sender: FDA-Public Use
  Company Number: PHHO2004IN09766

PATIENT
  Age: 48 Year
  Sex: Female

DRUGS (1)
  1. GLEEVEC [Suspect]
     Indication: BLAST CRISIS IN MYELOGENOUS LEUKAEMIA
     Dosage: 600 MG, QD
     Route: 048
     Dates: start: 20040602, end: 20040706

REACTIONS (7)
  - ASTHENIA [None]
  - HYPOPROTEINAEMIA [None]
  - JAUNDICE [None]
  - OEDEMA [None]
  - ORAL CANDIDIASIS [None]
  - PYREXIA [None]
  - RASH [None]
